FAERS Safety Report 7668510-1 (Version None)
Quarter: 2011Q3

REPORT INFORMATION
  Report Type: 
  Country: None (occurrence: None)
  Receive Date: 20110808
  Receipt Date: 20110801
  Transmission Date: 20111222
  Serious: Yes (Other)
  Sender: FDA-Public Use
  Company Number: CHPA2011US10183

PATIENT
  Sex: Female
  Weight: 63.039 kg

DRUGS (2)
  1. FERROUS SULFATE TAB [Suspect]
     Dosage: 2 DF, QD
     Route: 048
     Dates: start: 20110701
  2. FERROUS SULFATE TAB [Suspect]
     Indication: BLOOD IRON DECREASED
     Dosage: 2 DF, UNK
     Route: 048

REACTIONS (6)
  - TRANSFUSION [None]
  - CONSTIPATION [None]
  - HAEMOGLOBIN DECREASED [None]
  - INCORRECT PRODUCT STORAGE [None]
  - OVERDOSE [None]
  - NAUSEA [None]
